FAERS Safety Report 8988243 (Version 1)
Quarter: 2012Q4

REPORT INFORMATION
  Report Type: 
  Country: US (occurrence: US)
  Receive Date: 20121227
  Receipt Date: 20121227
  Transmission Date: 20130627
  Serious: Yes (Other)
  Sender: FDA-Public Use
  Company Number: US-ASTELLAS-2012US012531

PATIENT
  Age: 79 Year
  Sex: Male

DRUGS (1)
  1. VESICARE [Suspect]
     Indication: HYPERTONIC BLADDER
     Dosage: 10 mg, UID/QD
     Route: 048
     Dates: start: 20120701

REACTIONS (2)
  - Nephrolithiasis [Unknown]
  - Blood urine present [Unknown]
